FAERS Safety Report 5339382-5 (Version None)
Quarter: 2007Q2

REPORT INFORMATION
  Report Type: 
  Country: None (occurrence: None)
  Receive Date: 20070322
  Receipt Date: 20061013
  Transmission Date: 20071010
  Serious: Yes (Other)
  Sender: FDA-Public Use
  Company Number: 200613758BCC

PATIENT
  Age: 74 Year
  Sex: Female
  Weight: 61.2356 kg

DRUGS (8)
  1. ALEVE (CAPLET) [Suspect]
     Indication: ARTHRITIS
     Dosage: 220 MG, ONCE; ORAL
     Route: 048
     Dates: start: 20060901, end: 20060902
  2. ALEVE (CAPLET) [Suspect]
     Indication: MUSCULOSKELETAL STIFFNESS
     Dosage: 220 MG, ONCE; ORAL
     Route: 048
     Dates: start: 20060901, end: 20060902
  3. FOSAMAX [Concomitant]
  4. CALCIUM CHLORIDE [Concomitant]
  5. MAGNESIUM SULFATE [Concomitant]
  6. MULTI-VITAMIN [Concomitant]
  7. ZINC [Concomitant]
  8. FOLIC ACID [Concomitant]

REACTIONS (1)
  - HAEMATOCHEZIA [None]
